FAERS Safety Report 8273155-9 (Version None)
Quarter: 2012Q2

REPORT INFORMATION
  Report Type: 
  Country: None (occurrence: None)
  Receive Date: 20120411
  Receipt Date: 20120327
  Transmission Date: 20120825
  Serious: No
  Sender: FDA-Public Use
  Company Number: US-BAYER-2012-030210

PATIENT
  Age: 49 Year
  Sex: Female

DRUGS (1)
  1. CLIMARA [Suspect]
     Dosage: 1 MG, UNK
     Route: 062

REACTIONS (2)
  - BREAST TENDERNESS [None]
  - APPLICATION SITE PRURITUS [None]
